FAERS Safety Report 25526239 (Version 1)
Quarter: 2025Q3

REPORT INFORMATION
  Report Type: Spontaneous
  Country: CN (occurrence: CN)
  Receive Date: 20250707
  Receipt Date: 20250707
  Transmission Date: 20251020
  Serious: Yes (Hospitalization, Other)
  Sender: PFIZER
  Company Number: CN-PFIZER INC-PV202500076186

PATIENT
  Age: 54 Year
  Sex: Female

DRUGS (3)
  1. NURTEC ODT [Suspect]
     Active Substance: RIMEGEPANT SULFATE
     Indication: Dizziness
     Route: 048
     Dates: start: 20250612, end: 20250612
  2. MIN SHI LANG [Concomitant]
  3. FLUNARIZINE HYDROCHLORIDE [Concomitant]
     Active Substance: FLUNARIZINE HYDROCHLORIDE

REACTIONS (7)
  - Loss of consciousness [Unknown]
  - Vertigo [Recovering/Resolving]
  - Condition aggravated [Unknown]
  - Meniere^s disease [Unknown]
  - Cardiovascular disorder [Unknown]
  - Cerebrovascular disorder [Unknown]
  - Off label use [Unknown]

NARRATIVE: CASE EVENT DATE: 20250601
